FAERS Safety Report 23912286 (Version 7)
Quarter: 2024Q3

REPORT INFORMATION
  Report Type: Report from Study
  Country: CA (occurrence: CA)
  Receive Date: 20240528
  Receipt Date: 20240704
  Transmission Date: 20241016
  Serious: Yes (Hospitalization, Other)
  Sender: HLS THERAPEUTICS
  Company Number: CA-HLS-202401351

PATIENT
  Age: 34 Year
  Sex: Male

DRUGS (11)
  1. CLOZARIL [Suspect]
     Active Substance: CLOZAPINE
     Indication: Schizophrenia
     Dosage: STARTED 3 MAY 2024
     Route: 048
  2. CLOZARIL [Suspect]
     Active Substance: CLOZAPINE
     Indication: Schizophrenia
     Dosage: STARTED ON 25 MAY 2024 AND CLOZAPINE HELD (IN RESPONSE TO LABS) THE SAME DAY (25 MAY 2024) / 75 MG T
     Route: 048
  3. LOPRESSOR [Concomitant]
     Active Substance: METOPROLOL TARTRATE
     Indication: Product used for unknown indication
     Dosage: CHANGED TO 25 MG BID
     Route: 048
     Dates: start: 20240523
  4. LOPRESSOR [Concomitant]
     Active Substance: METOPROLOL TARTRATE
     Indication: Product used for unknown indication
     Dosage: STARTED 12.5 MG AM +25 MG PM
     Route: 065
     Dates: start: 20240518
  5. Vitamin D 2000 IU [Concomitant]
     Indication: Product used for unknown indication
     Dosage: DAILY
     Route: 065
  6. COGENTIN [Concomitant]
     Active Substance: BENZTROPINE MESYLATE
     Indication: Product used for unknown indication
     Dosage: TWICE DAILY
     Route: 048
  7. LIPITOR [Concomitant]
     Active Substance: ATORVASTATIN CALCIUM
     Indication: Product used for unknown indication
     Dosage: 10 MG DAILY
     Route: 065
  8. ABILIFY [Concomitant]
     Active Substance: ARIPIPRAZOLE
     Indication: Product used for unknown indication
     Dosage: 300 MG
     Route: 030
  9. ABILIFY [Concomitant]
     Active Substance: ARIPIPRAZOLE
     Indication: Product used for unknown indication
     Dosage: 400 MG INJECTION Q4 WEEKS
     Route: 030
  10. ZYPREXA [Concomitant]
     Active Substance: OLANZAPINE
     Indication: Product used for unknown indication
     Dosage: 5 MG ONCE DAILY AT BED TIME
     Route: 065
  11. INDERAL [Concomitant]
     Active Substance: PROPRANOLOL HYDROCHLORIDE
     Indication: Product used for unknown indication
     Dosage: 20 MG, TWICE DAILY
     Route: 048

REACTIONS (29)
  - Blood creatine phosphokinase increased [Unknown]
  - Alanine aminotransferase increased [Unknown]
  - Aspartate aminotransferase increased [Unknown]
  - Hallucination, auditory [Unknown]
  - Blood pressure increased [Recovered/Resolved]
  - Blood cholesterol increased [Unknown]
  - High density lipoprotein decreased [Unknown]
  - Low density lipoprotein increased [Unknown]
  - Non-high-density lipoprotein cholesterol increased [Unknown]
  - Diarrhoea [Unknown]
  - C-reactive protein increased [Recovered/Resolved]
  - Eosinophil count increased [Not Recovered/Not Resolved]
  - Pyrexia [Recovered/Resolved]
  - Fibrin D dimer increased [Unknown]
  - Blood glucose increased [Unknown]
  - Immature granulocyte count increased [Not Recovered/Not Resolved]
  - Monocyte count increased [Not Recovered/Not Resolved]
  - Myocarditis [Recovered/Resolved]
  - Neutrophil count increased [Unknown]
  - Blood osmolarity increased [Unknown]
  - Osmolar gap increased [Unknown]
  - Delusion [Unknown]
  - Blood phosphorus increased [Unknown]
  - Platelet count increased [Unknown]
  - Suicidal ideation [Unknown]
  - Tachycardia [Not Recovered/Not Resolved]
  - Blood triglycerides increased [Unknown]
  - Troponin I increased [Recovered/Resolved]
  - White blood cell count increased [Not Recovered/Not Resolved]

NARRATIVE: CASE EVENT DATE: 20240503
